FAERS Safety Report 8616470-9 (Version None)
Quarter: 2012Q3

REPORT INFORMATION
  Report Type: 
  Country: None (occurrence: None)
  Receive Date: 20120823
  Receipt Date: 20120816
  Transmission Date: 20120928
  Serious: Yes (Death, Hospitalization)
  Sender: FDA-Public Use
  Company Number: JP-009507513-1202USA02882

PATIENT

DRUGS (12)
  1. ZOLINZA [Suspect]
     Indication: MYCOSIS FUNGOIDES
     Dosage: 400 MG, QD
     Route: 048
     Dates: start: 20111110, end: 20111121
  2. ZOLINZA [Suspect]
     Dosage: 300 MG, QD
     Route: 048
     Dates: start: 20120102, end: 20120114
  3. PANTETHINE [Concomitant]
     Indication: CONSTIPATION
     Dosage: 200 MG, TID
     Route: 048
  4. ALLEGRA [Concomitant]
     Dosage: 60 MG, BID
     Route: 048
  5. ARMODAFINIL [Concomitant]
     Indication: INFECTION PROPHYLAXIS
     Dosage: 100 MG, BID
     Route: 048
  6. MAGLAX (MAGNESIUM OXIDE) [Concomitant]
     Indication: CONSTIPATION
     Dosage: 250 MG, TID
     Route: 048
  7. LANTUS [Concomitant]
     Indication: DIABETES MELLITUS
     Route: 058
  8. ZOLINZA [Suspect]
     Dosage: 300 MG, QD
     Route: 048
     Dates: start: 20111129, end: 20111201
  9. RABEPRAZOLE SODIUM [Concomitant]
     Indication: PROPHYLAXIS AGAINST GASTROINTESTINAL ULCER
     Dosage: 10 MG, QD
     Route: 048
  10. ZOLINZA [Suspect]
     Dosage: 300 MG, QD
     Route: 048
     Dates: start: 20111208, end: 20111226
  11. NOVORAPID [Concomitant]
     Indication: DIABETES MELLITUS
     Route: 058
  12. LIPITOR [Concomitant]
     Indication: HYPERLIPIDAEMIA
     Dosage: 10 MG, QD
     Route: 048

REACTIONS (12)
  - DEATH [None]
  - VOMITING [None]
  - PLATELET COUNT DECREASED [None]
  - NAUSEA [None]
  - ASPARTATE AMINOTRANSFERASE INCREASED [None]
  - DEEP VEIN THROMBOSIS [None]
  - ALANINE AMINOTRANSFERASE INCREASED [None]
  - PLEURAL EFFUSION [None]
  - EOSINOPHILIC PNEUMONIA ACUTE [None]
  - PAROTITIS [None]
  - DECREASED APPETITE [None]
  - CONSTIPATION [None]
